FAERS Safety Report 7944828-X (Version None)
Quarter: 2011Q4

REPORT INFORMATION
  Report Type: 
  Country: None (occurrence: None)
  Receive Date: 20111129
  Receipt Date: 20111122
  Transmission Date: 20120403
  Serious: Yes (Life-Threatening, Hospitalization, Other)
  Sender: FDA-Public Use
  Company Number: GB-PFIZER INC-2011209554

PATIENT
  Age: 6 Month
  Sex: Male

DRUGS (3)
  1. REFACTO [Suspect]
     Indication: CENTRAL VENOUS CATHETERISATION
     Dosage: UNK
     Route: 040
     Dates: start: 20110825, end: 20110826
  2. REFACTO [Suspect]
     Indication: CEREBRAL HAEMORRHAGE
     Dosage: UNK
     Route: 042
     Dates: start: 20110814, end: 20110825
  3. REFACTO [Suspect]
     Dosage: UNK
     Route: 042
     Dates: start: 20110826, end: 20110828

REACTIONS (2)
  - HYPERSENSITIVITY [None]
  - FACTOR VIII INHIBITION [None]
